FAERS Safety Report 11830145 (Version 1)
Quarter: 2015Q4

REPORT INFORMATION
  Report Type: Spontaneous
  Country: CA (occurrence: CA)
  Receive Date: 20151214
  Receipt Date: 20151214
  Transmission Date: 20160305
  Serious: Yes (Other)
  Sender: FDA-Public Use
  Company Number: CA-ROCHE-1672656

PATIENT
  Age: 88 Year
  Sex: Female

DRUGS (3)
  1. CHLORAMBUCIL [Suspect]
     Active Substance: CHLORAMBUCIL
     Indication: PRODUCT USED FOR UNKNOWN INDICATION
     Route: 065
  2. GAZYVA [Suspect]
     Active Substance: OBINUTUZUMAB
     Indication: PRODUCT USED FOR UNKNOWN INDICATION
     Route: 065
  3. METHYLPREDNISOLONE. [Concomitant]
     Active Substance: METHYLPREDNISOLONE
     Indication: PREMEDICATION

REACTIONS (7)
  - Breath sounds abnormal [Unknown]
  - Hypertension [Unknown]
  - Dyspnoea [Unknown]
  - Wheezing [Unknown]
  - Heart rate increased [Unknown]
  - Lymphocyte count decreased [Unknown]
  - Back pain [Unknown]

NARRATIVE: CASE EVENT DATE: 20151201
